FAERS Safety Report 5929462-5 (Version None)
Quarter: 2008Q3

REPORT INFORMATION
  Report Type: 
  Country: None (occurrence: None)
  Receive Date: 20080924
  Receipt Date: 20080828
  Transmission Date: 20090109
  Serious: Yes (Other)
  Sender: FDA-Public Use
  Company Number: A03200803448

PATIENT
  Sex: Female

DRUGS (2)
  1. AMBIEN CR [Suspect]
     Dosage: ORAL
     Route: 048
  2. ANTIDEPRESSANT [Concomitant]

REACTIONS (2)
  - ANXIETY [None]
  - SUICIDAL IDEATION [None]
